FAERS Safety Report 4661333-7 (Version None)
Quarter: 2005Q2

REPORT INFORMATION
  Report Type: 
  Country: None (occurrence: None)
  Receive Date: 20050511
  Receipt Date: 20050429
  Transmission Date: 20051028
  Serious: Yes (Death, Hospitalization)
  Sender: FDA-Public Use
  Company Number: 05P-056-029870-00

PATIENT
  Age: 35 Year
  Sex: Female

DRUGS (6)
  1. DEPAKENE [Suspect]
     Indication: CEREBRAL TOXOPLASMOSIS
     Dosage: ORAL
     Route: 048
     Dates: start: 20030301
  2. DEPAKENE [Suspect]
     Indication: EPILEPSY
     Dosage: ORAL
     Route: 048
     Dates: start: 20030301
  3. VIREAD [Suspect]
     Indication: HIV INFECTION
     Dosage: 300 MG, 1 IN 1 D, ORAL
     Route: 048
  4. LAMIVUDINE [Concomitant]
  5. PROTEASE INHIBITORS [Concomitant]
  6. SULFADIAZINE [Concomitant]

REACTIONS (6)
  - ACIDOSIS [None]
  - BLOOD CREATININE INCREASED [None]
  - FANCONI SYNDROME ACQUIRED [None]
  - POLYDIPSIA [None]
  - POLYURIA [None]
  - RENAL TUBULAR DISORDER [None]
